FAERS Safety Report 10258221 (Version 1)
Quarter: 2014Q2

REPORT INFORMATION
  Report Type: Spontaneous
  Country: US (occurrence: None)
  Receive Date: 20140623
  Receipt Date: 20140623
  Transmission Date: 20141212
  Serious: Yes (Other)
  Sender: FDA-Public Use
  Company Number: None

PATIENT
  Age: 57 Year
  Sex: Female
  Weight: 56.8 kg

DRUGS (6)
  1. SOLUMEDROL [Suspect]
     Indication: PREMEDICATION
     Route: 042
     Dates: start: 20140212, end: 20140603
  2. GAMMAGARD [Concomitant]
  3. NORMAL SALINE [Concomitant]
  4. VITAMIN D3 [Concomitant]
  5. OXYCODONE HCL [Concomitant]
  6. MORPHINE SULFATE CR 200 MG EVERY 12 HOURS [Concomitant]

REACTIONS (1)
  - Blindness transient [None]
